FAERS Safety Report 9879411 (Version 1)
Quarter: 2014Q1

REPORT INFORMATION
  Report Type: Spontaneous
  Country: IN (occurrence: IN)
  Receive Date: 20140206
  Receipt Date: 20140206
  Transmission Date: 20141002
  Serious: Yes (Other)
  Sender: FDA-Public Use
  Company Number: IN-PERRIGO-14IN001120

PATIENT
  Age: 57 Year
  Sex: Male

DRUGS (10)
  1. LORAZEPAM CONCENTRATE RX 2 MG/ML 1J9 [Suspect]
     Indication: DECREASED APPETITE
     Dosage: 3 MG, QD
     Route: 048
  2. LORAZEPAM CONCENTRATE RX 2 MG/ML 1J9 [Suspect]
     Indication: SOCIAL AVOIDANT BEHAVIOUR
     Dosage: 1 MG, TID
     Route: 048
  3. LORAZEPAM CONCENTRATE RX 2 MG/ML 1J9 [Suspect]
     Indication: DYSKINESIA
     Dosage: 1 MG, TAPERING DOSE
     Route: 048
  4. LORAZEPAM CONCENTRATE RX 2 MG/ML 1J9 [Suspect]
     Indication: GRIMACING
     Dosage: 2 MG
     Route: 048
  5. LORAZEPAM CONCENTRATE RX 2 MG/ML 1J9 [Suspect]
     Indication: DEPRESSION
  6. VENLAFAXINE [Suspect]
     Indication: DEPRESSION
     Dosage: 150 MG, UNKNOWN
     Route: 048
  7. MIRTAZAPINE [Suspect]
     Indication: DEPRESSION
     Dosage: 15 MG, UNKNOWN
     Route: 048
  8. AMLODIPINE [Concomitant]
     Indication: HYPERTENSION
     Dosage: 5 MG, UNKNOWN
     Route: 048
  9. LOSARTAN [Concomitant]
     Indication: HYPERTENSION
     Dosage: 50 MG, UNKNOWN
     Route: 048
  10. HYDROCHLOROTHIAZIDE [Concomitant]
     Indication: HYPERTENSION
     Dosage: 12.5 MG, UNKNOWN
     Route: 048

REACTIONS (12)
  - Drug withdrawal syndrome [Unknown]
  - Catatonia [Recovered/Resolved]
  - Anxiety [Recovered/Resolved]
  - Restlessness [Not Recovered/Not Resolved]
  - Nausea [Recovered/Resolved]
  - Hyperhidrosis [Not Recovered/Not Resolved]
  - Insomnia [Recovered/Resolved]
  - Urinary incontinence [Recovered/Resolved]
  - Tremor [Not Recovered/Not Resolved]
  - Balance disorder [Not Recovered/Not Resolved]
  - Hypophagia [Recovered/Resolved]
  - Social avoidant behaviour [Recovered/Resolved]
